FAERS Safety Report 19451635 (Version 1)
Quarter: 2021Q2

REPORT INFORMATION
  Report Type: Spontaneous
  Country: FR (occurrence: FR)
  Receive Date: 20210623
  Receipt Date: 20210623
  Transmission Date: 20210717
  Serious: Yes (Hospitalization)
  Sender: FDA-Public Use
  Company Number: FR-AMGEN-FRASP2021092675

PATIENT
  Age: 66 Year
  Sex: Female

DRUGS (9)
  1. ARIXTRA [Concomitant]
     Active Substance: FONDAPARINUX SODIUM
     Indication: PROPHYLAXIS
     Dosage: UNNK
     Route: 058
  2. PROCORALAN [Suspect]
     Active Substance: IVABRADINE
     Indication: ANGINA UNSTABLE
     Dosage: 5 MG, BID
     Route: 048
     Dates: start: 202102
  3. GLYCERYL TRINITRATE [Concomitant]
     Active Substance: NITROGLYCERIN
     Indication: ANGINA UNSTABLE
     Dosage: UNK
     Route: 062
  4. ROSUVASTATIN. [Concomitant]
     Active Substance: ROSUVASTATIN
     Indication: HYPERCHOLESTEROLAEMIA
     Dosage: UNK
     Route: 048
  5. ASPIRINE [Concomitant]
     Active Substance: ASPIRIN
     Indication: PROPHYLAXIS
     Dosage: UNK
  6. PROCORALAN [Suspect]
     Active Substance: IVABRADINE
     Indication: OFF LABEL USE
     Dosage: UNK
     Route: 065
  7. RAMIPRIL. [Concomitant]
     Active Substance: RAMIPRIL
     Indication: HYPERTENSION
     Dosage: UNK
     Route: 048
  8. RISORDAN [ISOSORBIDE DINITRATE] [Concomitant]
     Active Substance: ISOSORBIDE DINITRATE
     Indication: ANGINA UNSTABLE
     Dosage: UNK
     Route: 048
  9. ZOPICLONE [Concomitant]
     Active Substance: ZOPICLONE
     Indication: ANXIETY
     Dosage: UNK
     Route: 048

REACTIONS (3)
  - Acute coronary syndrome [Recovering/Resolving]
  - Off label use [Recovered/Resolved]
  - Product use issue [Recovered/Resolved]

NARRATIVE: CASE EVENT DATE: 2021
